FAERS Safety Report 11058097 (Version 1)
Quarter: 2015Q2

REPORT INFORMATION
  Report Type: Spontaneous
  Country: US (occurrence: None)
  Receive Date: 20150421
  Receipt Date: 20150421
  Transmission Date: 20150821
  Serious: Yes (Life-Threatening, Hospitalization, Disabling, Other)
  Sender: FDA-Public Use
  Company Number: US2015052074

PATIENT
  Age: 58 Year
  Sex: Male

DRUGS (6)
  1. FLOVENT [Concomitant]
     Active Substance: FLUTICASONE PROPIONATE
  2. ALTACE [Concomitant]
     Active Substance: RAMIPRIL
  3. TIVICAY [Suspect]
     Active Substance: DOLUTEGRAVIR SODIUM
     Indication: PRODUCT USED FOR UNKNOWN INDICATION
     Dates: start: 20150302
  4. PROVENTIL (SALBUTAMOL) [Concomitant]
  5. ASPIRIN (ACETYLSALICYCLIC ACID) [Concomitant]
     Active Substance: ASPIRIN
  6. EPZICOM (ABACAVIR, LAMIVUDINE) [Concomitant]

REACTIONS (2)
  - Hyperglycaemia [None]
  - Diabetes mellitus [None]

NARRATIVE: CASE EVENT DATE: 20150415
